FAERS Safety Report 4731098-9 (Version None)
Quarter: 2005Q3

REPORT INFORMATION
  Report Type: 
  Country: None (occurrence: None)
  Receive Date: 20050728
  Receipt Date: 20050429
  Transmission Date: 20060218
  Serious: No
  Sender: FDA-Public Use
  Company Number: ZICO001210

PATIENT
  Sex: Female

DRUGS (3)
  1. PRIALT [Suspect]
     Indication: DRUG USE FOR UNKNOWN INDICATION
     Dosage: 0.05 MCG/HR INTRATHECAL
     Route: 037
  2. BACLOFEN [Concomitant]
  3. MARCAINE [Concomitant]

REACTIONS (3)
  - BLOOD PRESSURE DECREASED [None]
  - INSOMNIA [None]
  - SENSORY DISTURBANCE [None]
